FAERS Safety Report 9637075 (Version 2)
Quarter: 2013Q4

REPORT INFORMATION
  Report Type: Spontaneous
  Country: IT (occurrence: IT)
  Receive Date: 20131022
  Receipt Date: 20131220
  Transmission Date: 20140711
  Serious: Yes (Hospitalization)
  Sender: FDA-Public Use
  Company Number: IT-BRISTOL-MYERS SQUIBB COMPANY-19540343

PATIENT
  Age: 86 Year
  Sex: Male

DRUGS (6)
  1. COUMADIN TABS 5 MG [Suspect]
     Dosage: INT:03-AUG-2013
     Route: 048
     Dates: start: 20060101
  2. METFORMIN [Concomitant]
     Route: 048
  3. ZOFENOPRIL [Concomitant]
     Route: 048
  4. PRADIF [Concomitant]
     Dosage: CAPS
     Route: 048
  5. SELECTIN TABS 40 MG [Concomitant]
     Route: 048
  6. CONTRAMAL [Concomitant]
     Dosage: STR:100 MG/ML ORAL DROPS.1DF:25DROPS
     Route: 048

REACTIONS (2)
  - Rectal haemorrhage [Recovering/Resolving]
  - Anaemia [Recovering/Resolving]
